FAERS Safety Report 7274496 (Version 3)
Quarter: 2013Q4

REPORT INFORMATION
  Report Type: Spontaneous
  Country: FR (occurrence: FR)
  Receive Date: 20100209
  Receipt Date: 20131223
  Transmission Date: 20140711
  Serious: Yes (Hospitalization, Other)
  Sender: FDA-Public Use
  Company Number: FR-B.I. PHARMACEUTICALS,INC./RIDGEFIELD-2010-FF-00090FF

PATIENT
  Age: 54 Year
  Sex: Female

DRUGS (2)
  1. CATAPRESSAN [Suspect]
     Indication: LOCAL ANAESTHESIA
     Dosage: 150 MCG
     Dates: start: 20081202, end: 20081202
  2. NAROPEINE [Suspect]
     Indication: LOCAL ANAESTHESIA
     Dosage: 190 MG
     Dates: start: 20081202, end: 20081202

REACTIONS (7)
  - Pain in extremity [Unknown]
  - Gait disturbance [Unknown]
  - Neuropathy peripheral [Unknown]
  - Medication error [Unknown]
  - Axonal neuropathy [Unknown]
  - Demyelination [Unknown]
  - Radiculopathy [Unknown]
